FAERS Safety Report 14880099 (Version 2)
Quarter: 2018Q2

REPORT INFORMATION
  Report Type: Spontaneous
  Country: RO (occurrence: RO)
  Receive Date: 20180511
  Receipt Date: 20180530
  Transmission Date: 20180711
  Serious: Yes (Other)
  Sender: FDA-Public Use
  Company Number: RO-SUN PHARMACEUTICAL INDUSTRIES LTD-2018RR-172588

PATIENT
  Age: 21 Year
  Sex: Female

DRUGS (1)
  1. TEMOZOLOMIDE. [Suspect]
     Active Substance: TEMOZOLOMIDE
     Indication: GLIOMA
     Dosage: 250 MG, DAILY, 5 DAYS PER MONTH
     Route: 065

REACTIONS (2)
  - Radiation necrosis [Recovered/Resolved]
  - Hemianopia homonymous [Recovered/Resolved]
